FAERS Safety Report 14394258 (Version 4)
Quarter: 2018Q1

REPORT INFORMATION
  Report Type: Spontaneous
  Country: NL (occurrence: NL)
  Receive Date: 20180116
  Receipt Date: 20180215
  Transmission Date: 20180509
  Serious: Yes (Other)
  Sender: FDA-Public Use
  Company Number: NL-BAUSCH-BL-2018-001200

PATIENT
  Age: 75 Year
  Sex: Female

DRUGS (6)
  1. MINIMS? PILOCARPINENITRAAT 20 MG/ML OOGDRUPPELS, OPLOSSING [Suspect]
     Active Substance: PILOCARPINE NITRATE
     Indication: PRODUCT USED FOR UNKNOWN INDICATION
     Dosage: 0.5 ML
     Route: 065
  2. MINIMS FENYLEFRINEHYDROCHLORIDE 25 MG/ML, OOGDRUPPELS, OPLOSSING [Suspect]
     Active Substance: PHENYLEPHRINE HYDROCHLORIDE
     Indication: PRODUCT USED FOR UNKNOWN INDICATION
     Dosage: 0.5 ML
     Route: 065
  3. MINIMS OXYBUPROCAINE HYDROCHLORIDE 4 MG/ML, OOGDRUPPELS, OPLOSSING [Suspect]
     Active Substance: BENOXINATE HYDROCHLORIDE
     Indication: PRODUCT USED FOR UNKNOWN INDICATION
     Dosage: 0.5 ML
     Route: 065
  4. LIDOCAINE 2% [Concomitant]
     Active Substance: LIDOCAINE
     Indication: PRODUCT USED FOR UNKNOWN INDICATION
     Route: 065
  5. PROTECTALON [Concomitant]
     Indication: PRODUCT USED FOR UNKNOWN INDICATION
     Route: 065
  6. MINIMS TROPICAMIDE  5 MG/ML OOGDRUPPELS, OPLOSSING [Suspect]
     Active Substance: TROPICAMIDE
     Indication: PRODUCT USED FOR UNKNOWN INDICATION
     Dosage: 0.4 ML
     Route: 065

REACTIONS (1)
  - Toxic anterior segment syndrome [Unknown]

NARRATIVE: CASE EVENT DATE: 201711
